FAERS Safety Report 20014233 (Version 1)
Quarter: 2021Q4

REPORT INFORMATION
  Report Type: Spontaneous
  Country: US (occurrence: US)
  Receive Date: 20211029
  Receipt Date: 20211029
  Transmission Date: 20220303
  Serious: No
  Sender: FDA-Public Use
  Company Number: US-PFIZER INC-202100999336

PATIENT
  Age: 77 Year
  Sex: Female

DRUGS (2)
  1. MEDROL [Interacting]
     Active Substance: METHYLPREDNISOLONE
     Dosage: UNK
  2. XELJANZ XR [Interacting]
     Active Substance: TOFACITINIB CITRATE
     Dosage: 11 MG
     Dates: start: 20200101

REACTIONS (2)
  - Nasopharyngitis [Unknown]
  - Drug interaction [Unknown]
